FAERS Safety Report 9115231 (Version 2)
Quarter: 2013Q1

REPORT INFORMATION
  Report Type: Spontaneous
  Country: US (occurrence: US)
  Receive Date: 20130225
  Receipt Date: 20130326
  Transmission Date: 20140127
  Serious: No
  Sender: FDA-Public Use
  Company Number: US-ROXANE LABORATORIES, INC.-2013-RO-00294RO

PATIENT
  Sex: Male
  Weight: 82 kg

DRUGS (1)
  1. FLUTICASONE [Suspect]
     Indication: RHINORRHOEA
     Route: 055
     Dates: start: 201301

REACTIONS (2)
  - Drug ineffective [Unknown]
  - Product quality issue [Unknown]
